FAERS Safety Report 24953098 (Version 1)
Quarter: 2025Q1

REPORT INFORMATION
  Report Type: Spontaneous
  Country: ES (occurrence: ES)
  Receive Date: 20250211
  Receipt Date: 20250211
  Transmission Date: 20250409
  Serious: Yes (Hospitalization, Other)
  Sender: AUROBINDO
  Company Number: ES-AEMPS-1625755

PATIENT
  Age: 92 Year
  Sex: Female
  Weight: 60 kg

DRUGS (6)
  1. AMLODIPINE [Suspect]
     Active Substance: AMLODIPINE BESYLATE
     Indication: Essential hypertension
     Route: 048
     Dates: start: 20170309, end: 20231215
  2. HYDROCHLOROTHIAZIDE\OLMESARTAN MEDOXOMIL [Suspect]
     Active Substance: HYDROCHLOROTHIAZIDE\OLMESARTAN MEDOXOMIL
     Indication: Essential hypertension
     Route: 048
     Dates: start: 20170120, end: 20231215
  3. Deprax [Concomitant]
     Indication: Generalised anxiety disorder
     Dosage: 50.0 MILLIGRAM, ONCE A DAY (Q/24 H NOC)
     Route: 048
     Dates: start: 20170707
  4. BETAHISTINA NORMON [Concomitant]
     Indication: Vertigo
     Dosage: 8 MILLIGRAM, ONCE A DAY (Q/24H)
     Route: 048
     Dates: start: 20161117
  5. LORAZEPAM [Concomitant]
     Active Substance: LORAZEPAM
     Indication: Generalised anxiety disorder
     Dosage: 1 MILLIGRAM, ONCE A DAY
     Route: 048
     Dates: start: 20100413
  6. CELECREM [Concomitant]
     Indication: Dermatitis
     Route: 065
     Dates: start: 20151216

REACTIONS (1)
  - Syncope [Recovered/Resolved]

NARRATIVE: CASE EVENT DATE: 20231215
